FAERS Safety Report 5717287-5 (Version None)
Quarter: 2008Q2

REPORT INFORMATION
  Report Type: 
  Country: None (occurrence: None)
  Receive Date: 20080423
  Receipt Date: 20080411
  Transmission Date: 20081010
  Serious: Yes (Hospitalization)
  Sender: FDA-Public Use
  Company Number: 20080099

PATIENT
  Age: 80 Year
  Sex: Female

DRUGS (1)
  1. VENOFER [Suspect]
     Indication: HAEMORRHAGIC ANAEMIA
     Dosage: 100 MG/ INTRAVENOUS
     Route: 042
     Dates: start: 20071227, end: 20071229

REACTIONS (1)
  - INJECTION SITE PHLEBITIS [None]
